FAERS Safety Report 8002769-6 (Version None)
Quarter: 2011Q4

REPORT INFORMATION
  Report Type: 
  Country: None (occurrence: None)
  Receive Date: 20111219
  Receipt Date: 20111213
  Transmission Date: 20120403
  Serious: Yes (Death, Hospitalization)
  Sender: FDA-Public Use
  Company Number: 2011MA016512

PATIENT
  Age: 82 Year
  Sex: Female

DRUGS (3)
  1. METFORMIN HYDROCHLORIDE [Suspect]
     Indication: DIABETES MELLITUS
     Dosage: PO
     Route: 048
  2. MORFIN MEDA [Concomitant]
  3. FUROSEMIDE [Concomitant]

REACTIONS (4)
  - ASCITES [None]
  - TOXICITY TO VARIOUS AGENTS [None]
  - RENAL FAILURE ACUTE [None]
  - INFECTION [None]
